FAERS Safety Report 8065066-9 (Version None)
Quarter: 2012Q1

REPORT INFORMATION
  Report Type: 
  Country: None (occurrence: None)
  Receive Date: 20120124
  Receipt Date: 20120117
  Transmission Date: 20120608
  Serious: No
  Sender: FDA-Public Use
  Company Number: US-PFIZER INC-2012014324

PATIENT
  Sex: Male
  Weight: 81 kg

DRUGS (11)
  1. ALLOPURINOL [Concomitant]
     Dosage: 100 MG, UNK
     Route: 048
  2. LABETALOL [Concomitant]
     Dosage: 100 MG, UNK
     Route: 048
  3. IRON [Concomitant]
     Dosage: 25 MG, UNK
     Route: 048
  4. PHOSLO [Concomitant]
     Dosage: 667 MG, UNK
     Route: 048
  5. ROPINIROLE [Concomitant]
     Dosage: 0.5 MG, UNK
     Route: 048
  6. SUTENT [Suspect]
     Indication: RENAL CELL CARCINOMA
     Dosage: 25 MG, 1X/DAY: FOR 4 WEEKS OFF 2 WEEKS
     Route: 048
  7. CRESTOR [Concomitant]
     Dosage: 10 MG, UNK
     Route: 048
  8. LEVOTHYROXINE [Concomitant]
     Dosage: 100 UG, UNK
     Route: 048
  9. NEPHRO-VITE [Concomitant]
     Dosage: UNK
     Route: 048
  10. NORVASC [Concomitant]
     Dosage: 10 MG, UNK
     Route: 048
  11. PERCOCET [Concomitant]
     Dosage: 10-325 MG
     Route: 048

REACTIONS (5)
  - DECREASED APPETITE [None]
  - DIARRHOEA [None]
  - CONSTIPATION [None]
  - WEIGHT DECREASED [None]
  - ANAEMIA [None]
